FAERS Safety Report 7271057-8 (Version None)
Quarter: 2011Q1

REPORT INFORMATION
  Report Type: 
  Country: None (occurrence: None)
  Receive Date: 20110202
  Receipt Date: 20110131
  Transmission Date: 20110831
  Serious: Yes (Hospitalization, Other)
  Sender: FDA-Public Use
  Company Number: US-PFIZER INC-2011022442

PATIENT
  Sex: Female
  Weight: 104.31 kg

DRUGS (7)
  1. KLOR-CON [Concomitant]
     Indication: MINERAL SUPPLEMENTATION
  2. LYRICA [Suspect]
     Indication: NEURALGIA
     Dosage: 75 MG, 3X/DAY
     Route: 048
     Dates: start: 20030101
  3. CYMBALTA [Concomitant]
     Indication: DEPRESSION
     Dosage: UNK
  4. GLIMEPIRIDE [Concomitant]
     Indication: DIABETES MELLITUS
     Dosage: UNK
  5. HYDROCHLOROTHIAZIDE [Concomitant]
     Indication: FLUID RETENTION
     Dosage: UNK
  6. METOPROLOL [Concomitant]
     Indication: HYPERTENSION
     Dosage: UNK
  7. ASCORBIC ACID [Concomitant]
     Dosage: UNK

REACTIONS (3)
  - FALL [None]
  - LOCALISED INFECTION [None]
  - MUSCULAR WEAKNESS [None]
